FAERS Safety Report 8870686 (Version 1)
Quarter: 2012Q4

REPORT INFORMATION
  Report Type: 
  Country: US (occurrence: US)
  Receive Date: 20121029
  Receipt Date: 20121029
  Transmission Date: 20130627
  Serious: No
  Sender: FDA-Public Use
  Company Number: US-BIOGENIDEC-2012BI047048

PATIENT
  Age: 59 Year
  Sex: Female

DRUGS (1)
  1. TYSABRI [Suspect]
     Indication: MULTIPLE SCLEROSIS
     Route: 042
     Dates: start: 20120904

REACTIONS (4)
  - Body temperature increased [Recovered/Resolved]
  - Muscle spasms [Not Recovered/Not Resolved]
  - Asthenia [Recovered/Resolved]
  - Urinary tract infection [Not Recovered/Not Resolved]
